FAERS Safety Report 15451941 (Version 1)
Quarter: 2018Q3

REPORT INFORMATION
  Report Type: Spontaneous
  Country: US (occurrence: US)
  Receive Date: 20180927
  Receipt Date: 20180927
  Transmission Date: 20181010
  Serious: Yes (Hospitalization, Disabling, Other)
  Sender: FDA-Public Use
  Company Number: None

PATIENT
  Age: 63 Year
  Sex: Female
  Weight: 68.95 kg

DRUGS (15)
  1. FLAXSEED [Concomitant]
     Active Substance: FLAX SEED
  2. VITAMIN D [Concomitant]
     Active Substance: CHOLECALCIFEROL
  3. COQ 10 [Concomitant]
     Active Substance: UBIDECARENONE
  4. LIPITOR [Concomitant]
     Active Substance: ATORVASTATIN CALCIUM
  5. VITAMIN B12 [Concomitant]
     Active Substance: CYANOCOBALAMIN
  6. CALCIUM [Concomitant]
     Active Substance: CALCIUM
  7. LYSINE [Concomitant]
     Active Substance: LYSINE
  8. ONTO F?MAGNESIUM [Concomitant]
  9. PROBIOTIC [Concomitant]
     Active Substance: PROBIOTICS NOS
  10. DIAZEPAM. [Concomitant]
     Active Substance: DIAZEPAM
  11. SUPER B ENERGY COMPLEX [Concomitant]
  12. DIGESTIVE PROBIOTIC [Concomitant]
  13. VITAFUSION WOMEN^S MULTIVITAMIN [Concomitant]
  14. SUPER DIGESTIVE ENZYME [Concomitant]
  15. PERCOCET [Suspect]
     Active Substance: ACETAMINOPHEN\OXYCODONE HYDROCHLORIDE
     Indication: ARTHRALGIA
     Route: 048
     Dates: start: 20180822, end: 20180822

REACTIONS (5)
  - Pruritus [None]
  - Lethargy [None]
  - Swelling face [None]
  - Erythema [None]
  - Pain [None]

NARRATIVE: CASE EVENT DATE: 20180822
